FAERS Safety Report 8774870 (Version 1)
Quarter: 2012Q4

REPORT INFORMATION
  Report Type: 
  Country: US (occurrence: US)
  Receive Date: 20120910
  Receipt Date: 20120910
  Transmission Date: 20130627
  Serious: No
  Sender: FDA-Public Use
  Company Number: US-BIOGENIDEC-2012BI035917

PATIENT
  Sex: Female

DRUGS (11)
  1. AVONEX [Suspect]
     Indication: MULTIPLE SCLEROSIS
     Route: 030
     Dates: start: 2008
  2. METHADONE [Concomitant]
  3. OXYCODONE [Concomitant]
  4. CLONAZEPAM [Concomitant]
  5. VITAMIN D [Concomitant]
  6. ST JOHN^S WART [Concomitant]
  7. GUARANA [Concomitant]
  8. GINKO BILOBA [Concomitant]
  9. GLUCOSAMINE SULFATE [Concomitant]
  10. GABAPENTIN [Concomitant]
  11. SERTRALINE [Concomitant]

REACTIONS (8)
  - Tremor [Unknown]
  - Hypoaesthesia [Unknown]
  - Fall [Recovered/Resolved]
  - Cognitive disorder [Unknown]
  - Vision blurred [Unknown]
  - Pain in extremity [Unknown]
  - Fatigue [Unknown]
  - Pain [Unknown]
